FAERS Safety Report 8820741 (Version 1)
Quarter: 2012Q4

REPORT INFORMATION
  Report Type: 
  Country: US (occurrence: US)
  Receive Date: 20121002
  Receipt Date: 20121002
  Transmission Date: 20130627
  Serious: Yes (Hospitalization)
  Sender: FDA-Public Use
  Company Number: US-PFIZER INC-2012241544

PATIENT
  Age: 74 Year
  Sex: Male
  Weight: 92.08 kg

DRUGS (4)
  1. MOTRIN IB [Suspect]
     Indication: HEADACHE
     Dosage: UNK
     Route: 048
     Dates: start: 1990
  2. ALLOPURINOL [Concomitant]
     Indication: GOUT
     Dosage: UNK
     Route: 065
  3. GEMFIBROZIL [Concomitant]
     Indication: BLOOD CHOLESTEROL INCREASED
     Dosage: UNK
     Route: 065
  4. LISINOPRIL [Concomitant]
     Indication: HYPERTENSION
     Dosage: UNK
     Route: 065

REACTIONS (1)
  - Gastric perforation [Recovered/Resolved]
